FAERS Safety Report 5710742-3 (Version None)
Quarter: 2008Q2

REPORT INFORMATION
  Report Type: 
  Country: None (occurrence: None)
  Receive Date: 20080421
  Receipt Date: 20080411
  Transmission Date: 20081010
  Serious: Yes (Other)
  Sender: FDA-Public Use
  Company Number: FR-ELI_LILLY_AND_COMPANY-FR200804003675

PATIENT
  Age: 35 Year
  Sex: Male

DRUGS (2)
  1. ZYPREXA [Suspect]
     Dosage: 30 MG, UNK
  2. HALDOL [Concomitant]
     Dosage: 2 MG, UNK

REACTIONS (3)
  - METABOLIC DISORDER [None]
  - OVERDOSE [None]
  - WEIGHT INCREASED [None]
